FAERS Safety Report 8808382 (Version 1)
Quarter: 2012Q4

REPORT INFORMATION
  Report Type: Spontaneous
  Country: US (occurrence: None)
  Receive Date: 20120920
  Receipt Date: 20120920
  Transmission Date: 20130627
  Serious: Yes (Hospitalization)
  Sender: FDA-Public Use
  Company Number: ACO_31923_2012

PATIENT
  Age: 25 Year
  Sex: Male

DRUGS (2)
  1. AMPYRA [Suspect]
     Indication: DRUG USE FOR UNKNOWN INDICATION
     Dates: start: 201006
  2. ARICEPT [Concomitant]

REACTIONS (3)
  - Chest pain [None]
  - Chest discomfort [None]
  - Multiple sclerosis relapse [None]
